FAERS Safety Report 24037483 (Version 5)
Quarter: 2025Q4

REPORT INFORMATION
  Report Type: Spontaneous
  Country: US (occurrence: US)
  Receive Date: 20240702
  Receipt Date: 20251030
  Transmission Date: 20260117
  Serious: Yes (Hospitalization, Other)
  Sender: CATALYST PHARMA
  Company Number: US-CATALYST PHARMACEUTICALS, INC-US-CATA-24-00265

PATIENT
  Age: 0 Year
  Sex: Male
  Weight: 9.65 kg

DRUGS (10)
  1. FIRDAPSE [Suspect]
     Active Substance: AMIFAMPRIDINE PHOSPHATE
     Indication: Congenital myasthenic syndrome
     Dosage: DISSOLVE ONE (10 MG) TABLET IN 10 ML OF WATER, GIVE 1.25 ML OR NG-TUBE TWICE DAILY, INCREASING AS DI
     Route: 048
     Dates: start: 20240329, end: 2024
  2. FIRDAPSE [Suspect]
     Active Substance: AMIFAMPRIDINE PHOSPHATE
     Dosage: 1.25 ML QID
     Route: 048
     Dates: start: 20240730
  3. FIRDAPSE [Suspect]
     Active Substance: AMIFAMPRIDINE PHOSPHATE
     Dosage: DISSOLVE ONE (10 MG) TABLET IN 10 ML OF WATER, GIVE 2 ML BY MOUTH AT 6 AM, 10 AM, 2 PM AND 6 PM
     Route: 048
  4. MESTINON [Concomitant]
     Active Substance: PYRIDOSTIGMINE BROMIDE
     Indication: Congenital myasthenic syndrome
     Dosage: 7 MG/KG QID
     Route: 048
     Dates: start: 202402
  5. MESTINON [Concomitant]
     Active Substance: PYRIDOSTIGMINE BROMIDE
     Dosage: 5 ML 4 TIMES A DAY
     Route: 065
  6. VITAMIN D3 [Concomitant]
     Active Substance: CHOLECALCIFEROL
     Indication: Vitamin supplementation
     Dosage: 1 ML DAILY
     Route: 065
  7. VITAMIN D [Concomitant]
     Active Substance: VITAMIN D NOS
     Indication: Supplementation therapy
     Dosage: 10 MCG/ML ONE DROP DAILY
     Route: 048
  8. VITAMIN D [Concomitant]
     Active Substance: VITAMIN D NOS
     Dosage: 10 MCG/ML (1 ML DAILY)
     Route: 048
  9. ALBUTEROL SULFATE [Concomitant]
     Active Substance: ALBUTEROL SULFATE
     Indication: Respiratory therapy
     Dosage: 0.63 MG AS NEEDED
     Route: 055
  10. SODIUM CHLORIDE [Concomitant]
     Active Substance: SODIUM CHLORIDE
     Indication: Respiratory therapy
     Dosage: 3.5% INHALE AS NEEDED
     Route: 055

REACTIONS (6)
  - Respiratory arrest [Unknown]
  - Cardiac arrest [Unknown]
  - Cardiac arrest [Recovered/Resolved]
  - Oxygen saturation decreased [Recovered/Resolved]
  - Off label use [Unknown]
  - Product prescribing issue [Unknown]

NARRATIVE: CASE EVENT DATE: 20240329
